FAERS Safety Report 9261694 (Version 1)
Quarter: 2013Q2

REPORT INFORMATION
  Report Type: Spontaneous
  Country: US (occurrence: US)
  Receive Date: 20130429
  Receipt Date: 20130429
  Transmission Date: 20140414
  Serious: Yes (Other)
  Sender: FDA-Public Use
  Company Number: US-BRISTOL-MYERS SQUIBB COMPANY-18587642

PATIENT
  Age: 65 Year
  Sex: Male

DRUGS (5)
  1. BYDUREON [Suspect]
     Indication: TYPE 2 DIABETES MELLITUS
     Dosage: 7JAN13-18JAN13
     Route: 058
     Dates: start: 20130107, end: 20130118
  2. CRESTOR [Concomitant]
  3. DIOVAN [Concomitant]
  4. JANUMET [Concomitant]
  5. TRILIPIX [Concomitant]

REACTIONS (1)
  - B-cell lymphoma [Unknown]
